FAERS Safety Report 14635664 (Version 2)
Quarter: 2019Q3

REPORT INFORMATION
  Report Type: Report from Study
  Country: US (occurrence: US)
  Receive Date: 20180314
  Receipt Date: 20190916
  Transmission Date: 20191004
  Serious: Yes (Other)
  Sender: FDA-Public Use
  Company Number: US-BAYER-2018-037758

PATIENT
  Age: 42 Year
  Sex: Female

DRUGS (8)
  1. BETASERON MIXJECT TRANSFER DEVICE VIAL ADAPTER [Suspect]
     Active Substance: INTERFERON BETA-1B
  2. TYLENOL [Concomitant]
     Active Substance: ACETAMINOPHEN
  3. VITAMIN D [VITAMIN D NOS] [Concomitant]
     Active Substance: VITAMIN D NOS
  4. FOLIC ACID. [Concomitant]
     Active Substance: FOLIC ACID
  5. BETASERON [Suspect]
     Active Substance: INTERFERON BETA-1B
  6. BETASERON [Suspect]
     Active Substance: INTERFERON BETA-1B
     Indication: MULTIPLE SCLEROSIS
     Dosage: 1 ML, QOD
     Route: 058
     Dates: start: 201712
  7. COLACE [Concomitant]
     Active Substance: DOCUSATE SODIUM
  8. IRON [Concomitant]
     Active Substance: IRON

REACTIONS (4)
  - Injection site urticaria [Not Recovered/Not Resolved]
  - Adverse reaction [None]
  - Injection site erythema [Not Recovered/Not Resolved]
  - Incorrect dose administered by device [Not Recovered/Not Resolved]

NARRATIVE: CASE EVENT DATE: 2018
